FAERS Safety Report 12034360 (Version 2)
Quarter: 2016Q3

REPORT INFORMATION
  Report Type: Spontaneous
  Country: US (occurrence: US)
  Receive Date: 20160207
  Receipt Date: 20160812
  Transmission Date: 20161109
  Serious: Yes (Disabling, Other)
  Sender: FDA-Public Use
  Company Number: US-ENDO PHARMACEUTICALS INC.-2016-000933

PATIENT
  Age: 71 Year
  Sex: Male
  Weight: 79.45 kg

DRUGS (13)
  1. STRIANT [Suspect]
     Active Substance: TESTOSTERONE
     Indication: ANDROGEN REPLACEMENT THERAPY
     Route: 002
     Dates: start: 2006, end: 2008
  2. FORTESTA [Suspect]
     Active Substance: TESTOSTERONE
     Indication: ANDROGEN REPLACEMENT THERAPY
     Route: 061
     Dates: start: 2006, end: 2008
  3. DEPO TESTOSTERONE [Suspect]
     Active Substance: TESTOSTERONE
     Route: 030
     Dates: start: 20040519, end: 2010
  4. ANDRODERM [Suspect]
     Active Substance: TESTOSTERONE
     Indication: ANDROGEN REPLACEMENT THERAPY
     Route: 065
     Dates: start: 2006, end: 2008
  5. AXIRON [Suspect]
     Active Substance: TESTOSTERONE
     Indication: ANDROGEN REPLACEMENT THERAPY
     Route: 065
     Dates: start: 2006, end: 2008
  6. DEPO TESTOSTERONE [Suspect]
     Active Substance: TESTOSTERONE
     Route: 030
     Dates: start: 200212, end: 200302
  7. TESTOPEL [Suspect]
     Active Substance: TESTOSTERONE
     Indication: ANDROGEN REPLACEMENT THERAPY
     Route: 058
     Dates: start: 2006, end: 2008
  8. ANDROGEL [Suspect]
     Active Substance: TESTOSTERONE
     Indication: ANDROGEN REPLACEMENT THERAPY
     Route: 065
     Dates: start: 2006, end: 2008
  9. DEPO TESTOSTERONE [Suspect]
     Active Substance: TESTOSTERONE
     Indication: ANDROGEN REPLACEMENT THERAPY
     Route: 030
     Dates: start: 20021112, end: 200212
  10. TESTIM [Suspect]
     Active Substance: TESTOSTERONE
     Indication: ANDROGEN REPLACEMENT THERAPY
     Route: 062
     Dates: start: 2006, end: 2008
  11. DELATESTRYL [Suspect]
     Active Substance: TESTOSTERONE ENANTHATE
     Indication: ANDROGEN REPLACEMENT THERAPY
     Route: 030
     Dates: start: 2006, end: 2008
  12. DEPO TESTOSTERONE [Suspect]
     Active Substance: TESTOSTERONE
     Route: 030
     Dates: start: 200302, end: 20040519
  13. ASPIRIN. [Concomitant]
     Active Substance: ASPIRIN
     Indication: PRODUCT USED FOR UNKNOWN INDICATION
     Route: 065
     Dates: start: 2006

REACTIONS (5)
  - Hypertension [Not Recovered/Not Resolved]
  - Prostate cancer [Unknown]
  - Cerebrovascular accident [Not Recovered/Not Resolved]
  - Cardiovascular disorder [Not Recovered/Not Resolved]
  - Sleep apnoea syndrome [Unknown]

NARRATIVE: CASE EVENT DATE: 20040913
